FAERS Safety Report 12154169 (Version 1)
Quarter: 2016Q1

REPORT INFORMATION
  Report Type: Spontaneous
  Country: US (occurrence: US)
  Receive Date: 20160307
  Receipt Date: 20160307
  Transmission Date: 20160526
  Serious: No
  Sender: FDA-Public Use
  Company Number: PHEH2016US005186

PATIENT
  Sex: Male
  Weight: 90.72 kg

DRUGS (3)
  1. TEGRETOL [Suspect]
     Active Substance: CARBAMAZEPINE
     Indication: BURNING MOUTH SYNDROME
     Dosage: 300 MG, QD
     Route: 048
  2. CLONAZEPAM. [Concomitant]
     Active Substance: CLONAZEPAM
     Indication: BURNING MOUTH SYNDROME
     Dosage: 1 MG, BID
     Route: 048
     Dates: start: 2003
  3. TRILEPTAL [Concomitant]
     Active Substance: OXCARBAZEPINE
     Indication: FACIAL PAIN
     Dosage: 300 MG, BID
     Route: 048
     Dates: start: 2003

REACTIONS (3)
  - Facial pain [Unknown]
  - Thermal burn [Unknown]
  - White blood cell count decreased [Unknown]
